FAERS Safety Report 8490086-X (Version None)
Quarter: 2012Q3

REPORT INFORMATION
  Report Type: 
  Country: None (occurrence: None)
  Receive Date: 20120705
  Receipt Date: 20120626
  Transmission Date: 20120928
  Serious: Yes (Other)
  Sender: FDA-Public Use
  Company Number: PHHY2012US054839

PATIENT
  Age: 29 Year
  Sex: Female

DRUGS (6)
  1. PALIPERIDONE [Concomitant]
     Dosage: 6 MG/ DAY
  2. VALPROATE SODIUM [Suspect]
  3. HALOPERIDOL [Suspect]
  4. LAMOTRIGINE [Concomitant]
     Dosage: 200 MG/ DAY
  5. CLOZAPINE [Suspect]
     Dosage: 600 MG, DAILY
  6. ANTIPSYCHOTICS [Concomitant]

REACTIONS (3)
  - MANIA [None]
  - HYPOMANIA [None]
  - OESTRADIOL DECREASED [None]
